FAERS Safety Report 4790225-8 (Version None)
Quarter: 2005Q4

REPORT INFORMATION
  Report Type: 
  Country: None (occurrence: None)
  Receive Date: 20051006
  Receipt Date: 20050824
  Transmission Date: 20060501
  Serious: Yes (Hospitalization)
  Sender: FDA-Public Use
  Company Number: JP-BRISTOL-MYERS SQUIBB COMPANY-13090899

PATIENT
  Age: 54 Year
  Sex: Male

DRUGS (3)
  1. PARAPLATIN [Suspect]
     Indication: LUNG SQUAMOUS CELL CARCINOMA STAGE III
     Route: 042
     Dates: start: 20030101, end: 20030101
  2. TAXOTERE [Suspect]
     Indication: LUNG SQUAMOUS CELL CARCINOMA STAGE III
     Route: 042
     Dates: start: 20030101, end: 20030101
  3. RADIOTHERAPY [Suspect]
     Indication: LUNG SQUAMOUS CELL CARCINOMA STAGE III
     Dates: start: 20030101, end: 20030101

REACTIONS (2)
  - EMPYEMA [None]
  - RADIATION PNEUMONITIS [None]
